FAERS Safety Report 10442481 (Version 1)
Quarter: 2014Q3

REPORT INFORMATION
  Report Type: Spontaneous
  Country: US (occurrence: None)
  Receive Date: 20140908
  Receipt Date: 20140908
  Transmission Date: 20150326
  Serious: Yes (Hospitalization, Other)
  Sender: FDA-Public Use
  Company Number: 2010S1002321

PATIENT
  Age: 68 Year
  Sex: Male
  Weight: 74 kg

DRUGS (9)
  1. RANITIDINE [Concomitant]
     Active Substance: RANITIDINE\RANITIDINE HYDROCHLORIDE
  2. ULTRAM (TRAMADOL HYDROCHLORIDE) [Concomitant]
     Active Substance: TRAMADOL HYDROCHLORIDE
  3. TYLENOL [Concomitant]
     Active Substance: ACETAMINOPHEN
  4. HALDOL (HALOPERIDOL) [Concomitant]
  5. PROCARDIA [Concomitant]
     Active Substance: NIFEDIPINE
  6. LACTULOSE. [Concomitant]
     Active Substance: LACTULOSE
  7. PHOSPHO-SODA [Suspect]
     Active Substance: SODIUM PHOSPHATE, DIBASIC\SODIUM PHOSPHATE, MONOBASIC
     Indication: COLOSTOMY
     Route: 048
     Dates: start: 20080107, end: 20080107
  8. AMOXICILLIN. [Concomitant]
     Active Substance: AMOXICILLIN
  9. ZOLOFT [Concomitant]
     Active Substance: SERTRALINE HYDROCHLORIDE

REACTIONS (22)
  - Renal failure acute [None]
  - Intestinal obstruction [None]
  - Diverticulum intestinal [None]
  - Injury [None]
  - Gastritis [None]
  - Respiratory failure [None]
  - Asthenia [None]
  - Nephrolithiasis [None]
  - Balance disorder [None]
  - Gait disturbance [None]
  - Neuropathy peripheral [None]
  - Pyrexia [None]
  - Renal cyst [None]
  - Prostatomegaly [None]
  - Dialysis [None]
  - Iron deficiency anaemia [None]
  - Colitis [None]
  - Multi-organ failure [None]
  - Malaise [None]
  - Cardiac failure [None]
  - Nephrogenic anaemia [None]
  - Hyperhidrosis [None]

NARRATIVE: CASE EVENT DATE: 20091119
